FAERS Safety Report 12327045 (Version 1)
Quarter: 2016Q2

REPORT INFORMATION
  Report Type: Spontaneous
  Country: US (occurrence: None)
  Receive Date: 20160502
  Receipt Date: 20160502
  Transmission Date: 20160815
  Serious: No
  Sender: FDA-Public Use
  Company Number: None

PATIENT
  Age: 10 Year
  Sex: Female
  Weight: 24.95 kg

DRUGS (1)
  1. METHYLPHENIDATE, 18 MG [Suspect]
     Active Substance: METHYLPHENIDATE
     Indication: ATTENTION DEFICIT/HYPERACTIVITY DISORDER
     Dosage: 1 TABLET (S) IN THE MORNING  TAKEN BY MOUTH
     Route: 048
     Dates: start: 20160301, end: 20160425

REACTIONS (5)
  - Product substitution issue [None]
  - Insomnia [None]
  - Mood swings [None]
  - Major depression [None]
  - Decreased appetite [None]

NARRATIVE: CASE EVENT DATE: 20160301
